FAERS Safety Report 8608048 (Version 3)
Quarter: 2014Q1

REPORT INFORMATION
  Report Type: Spontaneous
  Country: US (occurrence: US)
  Receive Date: 20120611
  Receipt Date: 20140124
  Transmission Date: 20141002
  Serious: Yes (Other)
  Sender: FDA-Public Use
  Company Number: US-ASTRAZENECA-2012SE35328

PATIENT
  Age: 66 Year
  Sex: Female

DRUGS (25)
  1. NEXIUM [Suspect]
     Indication: GASTROOESOPHAGEAL REFLUX DISEASE
     Dosage: ONCE
     Route: 048
     Dates: start: 2004, end: 2011
  2. RANIDINE [Concomitant]
     Dates: start: 1996
  3. TUMS/OYSTER SHELL CALCIUM [Concomitant]
     Dates: start: 1980
  4. TUMS/OYSTER SHELL CALCIUM [Concomitant]
     Dosage: 50 TO 200 MG
     Dates: start: 20110523
  5. ALKA-SELTZER [Concomitant]
  6. MILK OF MAGNESIA [Concomitant]
  7. PEPTO-BISMOL [Concomitant]
  8. ROLAIDS [Concomitant]
  9. MYLANTA [Concomitant]
     Dates: start: 1970
  10. ALENDRONATE SODIUM [Concomitant]
     Dates: start: 20110523
  11. FENOFIBRATE [Concomitant]
     Dates: start: 20110601
  12. ROPINIROLE HCL [Concomitant]
     Dates: start: 20110601
  13. ISOSORBIDE MONONITRATE [Concomitant]
     Dates: start: 20110601
  14. DETROL LA [Concomitant]
     Dates: start: 20110601
  15. RANITIDINE HCL [Concomitant]
     Dates: start: 20110601
  16. LEVAQUIN [Concomitant]
     Dates: start: 20110601
  17. KLOR CON [Concomitant]
     Dates: start: 20110627
  18. LISINOPRIL [Concomitant]
     Dates: start: 20110627
  19. FUROSEMIDE [Concomitant]
     Dates: start: 20110627
  20. IMIPRAMINE HCL [Concomitant]
     Dates: start: 20110627
  21. NITROSTAT [Concomitant]
     Dates: start: 20110627
  22. CALCIUM + D [Concomitant]
     Dates: start: 20110627
  23. HYDROCODONE ACETAMINOPHEN [Concomitant]
     Dosage: 10 TO 500 MG
     Dates: start: 20110627
  24. CRESTOR [Concomitant]
     Dates: start: 20110627
  25. PREMARIN [Concomitant]
     Dates: start: 20110627

REACTIONS (12)
  - Cerebrovascular accident [Unknown]
  - Transient ischaemic attack [Unknown]
  - Osteoporosis [Unknown]
  - Angina pectoris [Unknown]
  - Arthritis [Unknown]
  - Multiple fractures [Unknown]
  - Calcium deficiency [Unknown]
  - Diabetes mellitus [Unknown]
  - Hand fracture [Unknown]
  - Glaucoma [Unknown]
  - Stress fracture [Unknown]
  - Vitamin D deficiency [Unknown]
